FAERS Safety Report 6354964-X (Version None)
Quarter: 2009Q3

REPORT INFORMATION
  Report Type: 
  Country: None (occurrence: None)
  Receive Date: 20090914
  Receipt Date: 20090908
  Transmission Date: 20100115
  Serious: Yes (Hospitalization)
  Sender: FDA-Public Use
  Company Number: A0799941B

PATIENT
  Age: 68 Year
  Sex: Female
  Weight: 105 kg

DRUGS (2)
  1. LAPATINIB [Suspect]
     Indication: BREAST CANCER
     Dosage: 1500MG PER DAY
     Route: 048
     Dates: start: 20090717, end: 20090831
  2. PACLITAXEL [Suspect]
     Indication: BREAST CANCER
     Dosage: 80MGM2 WEEKLY
     Route: 042
     Dates: start: 20090717, end: 20090821

REACTIONS (4)
  - ANAEMIA [None]
  - DYSPNOEA [None]
  - PNEUMONIA [None]
  - PYREXIA [None]
